FAERS Safety Report 8901233 (Version 1)
Quarter: 2012Q4

REPORT INFORMATION
  Report Type: Report from Study
  Country: CH (occurrence: CH)
  Receive Date: 20121109
  Receipt Date: 20121109
  Transmission Date: 20130627
  Serious: Yes (Life-Threatening, Hospitalization)
  Sender: FDA-Public Use
  Company Number: CH-CELGENEUS-151-50794-09061198

PATIENT
  Age: 77 Year
  Sex: Male

DRUGS (3)
  1. VIDAZA [Suspect]
     Indication: ACUTE MYELOID LEUKEMIA
     Dosage: 170 Milligram
     Route: 058
     Dates: start: 20090612, end: 20090616
  2. SELECTOL [Concomitant]
     Indication: HYPERTENSION
     Route: 065
  3. ALDACTONE [Concomitant]
     Indication: HYPERTENSION
     Route: 065

REACTIONS (2)
  - Pneumonia [Recovered/Resolved]
  - Renal impairment [Recovered/Resolved]
